FAERS Safety Report 4418147-2 (Version None)
Quarter: 2004Q3

REPORT INFORMATION
  Report Type: 
  Country: None (occurrence: None)
  Receive Date: 20040809
  Receipt Date: 20031015
  Transmission Date: 20050211
  Serious: No
  Sender: FDA-Public Use
  Company Number: US-GLAXOSMITHKLINE-A0430453A

PATIENT
  Age: 63 Year
  Sex: Female

DRUGS (2)
  1. PAXIL [Suspect]
     Indication: GENERALISED ANXIETY DISORDER
     Dosage: 25MG PER DAY
     Route: 048
  2. PAXIL [Suspect]
     Dosage: 20MG PER DAY
     Route: 048

REACTIONS (8)
  - ABDOMINAL DISTENSION [None]
  - DRUG WITHDRAWAL SYNDROME [None]
  - FACE OEDEMA [None]
  - NAUSEA [None]
  - PARAESTHESIA [None]
  - VERTIGO [None]
  - VOMITING [None]
  - WEIGHT INCREASED [None]
